FAERS Safety Report 6101530-7 (Version None)
Quarter: 2009Q1

REPORT INFORMATION
  Report Type: 
  Country: None (occurrence: None)
  Receive Date: 20090303
  Receipt Date: 20090303
  Transmission Date: 20090719
  Serious: Yes (Hospitalization)
  Sender: FDA-Public Use
  Company Number: None

PATIENT
  Age: 80 Year
  Sex: Male
  Weight: 64 kg

DRUGS (8)
  1. PHENYTOIN [Suspect]
     Indication: CONVULSION
     Dosage: 100 MG AM, 125 MG PM DAILY PO, CHRONIC
     Route: 048
  2. ALTACE [Concomitant]
  3. ASPIRIN [Concomitant]
  4. FLOMAX [Concomitant]
  5. LIPITOR [Concomitant]
  6. PROSCAR [Concomitant]
  7. TOPROL-XL [Concomitant]
  8. VIT D [Concomitant]

REACTIONS (1)
  - DIZZINESS [None]
